FAERS Safety Report 14627686 (Version 2)
Quarter: 2018Q1

REPORT INFORMATION
  Report Type: Spontaneous
  Country: NL (occurrence: NL)
  Receive Date: 20180312
  Receipt Date: 20180316
  Transmission Date: 20180509
  Serious: Yes (Other)
  Sender: FDA-Public Use
  Company Number: PHHY2018NL039839

PATIENT
  Age: 64 Year
  Sex: Male
  Weight: 102 kg

DRUGS (2)
  1. METOPROLOL. [Suspect]
     Active Substance: METOPROLOL
     Indication: MYOCARDIAL INFARCTION
     Dosage: 1 DF, QD
     Route: 065
     Dates: start: 20100101, end: 20141101
  2. BISOPROLOL [Suspect]
     Active Substance: BISOPROLOL
     Indication: MYOCARDIAL INFARCTION
     Dosage: 1 DF, QD
     Route: 065
     Dates: start: 20140101, end: 20161101

REACTIONS (2)
  - Immune thrombocytopenic purpura [Recovered/Resolved]
  - Retroperitoneal fibrosis [Unknown]

NARRATIVE: CASE EVENT DATE: 20140501
